FAERS Safety Report 25865296 (Version 1)
Quarter: 2025Q3

REPORT INFORMATION
  Report Type: Spontaneous
  Country: US (occurrence: None)
  Receive Date: 20250930
  Receipt Date: 20250930
  Transmission Date: 20251021
  Serious: Yes (Hospitalization)
  Sender: FDA-CTU
  Company Number: None

PATIENT
  Age: 63 Year
  Sex: Female

DRUGS (2)
  1. ABRAXANE [Suspect]
     Active Substance: PACLITAXEL
     Dosage: 1,920MG, 240MG  EVERY 12 WEEKS
  2. ABRAXANE [Suspect]
     Active Substance: PACLITAXEL

REACTIONS (1)
  - Hospitalisation [None]
